FAERS Safety Report 9098554 (Version 1)
Quarter: 2013Q1

REPORT INFORMATION
  Report Type: Spontaneous
  Country: NL (occurrence: NL)
  Receive Date: 20130214
  Receipt Date: 20130214
  Transmission Date: 20140127
  Serious: Yes (Other)
  Sender: FDA-Public Use
  Company Number: NL-WATSON-2013-02120

PATIENT
  Age: 41 Year
  Sex: Female

DRUGS (3)
  1. METHYLDOPA (WATSON LABORATORIES) [Suspect]
     Indication: HYPERTENSION
     Dosage: UNK, UNKNOWN
     Route: 065
  2. NICARDIPINE [Suspect]
     Indication: HYPERTENSION
     Dosage: UNK, UNKNOWN
     Route: 065
  3. METHYLPREDNISOLONE ACETATE [Suspect]
     Indication: LUPUS NEPHRITIS
     Dosage: UNK, UNKNOWN
     Route: 042

REACTIONS (3)
  - Abortion induced [Unknown]
  - Maternal exposure during pregnancy [Unknown]
  - General physical health deterioration [None]
